FAERS Safety Report 7893475-7 (Version None)
Quarter: 2011Q4

REPORT INFORMATION
  Report Type: 
  Country: None (occurrence: None)
  Receive Date: 20111104
  Receipt Date: 20111027
  Transmission Date: 20120403
  Serious: Yes (Hospitalization, Other)
  Sender: FDA-Public Use
  Company Number: US-US-EMD SERONO, INC.-7092553

PATIENT
  Sex: Female
  Weight: 94 kg

DRUGS (2)
  1. REBIF [Suspect]
     Indication: PRODUCT USED FOR UNKNOWN INDICATION
     Route: 058
     Dates: start: 20030926
  2. MANY UNSPECIFIED MEDICATIONS [Concomitant]

REACTIONS (5)
  - ARTERIAL OCCLUSIVE DISEASE [None]
  - DIZZINESS [None]
  - GASTRIC NEOPLASM [None]
  - HAEMORRHOIDS [None]
  - NEOPLASM [None]
